FAERS Safety Report 10703179 (Version 11)
Quarter: 2015Q3

REPORT INFORMATION
  Report Type: Report from Study
  Country: US (occurrence: US)
  Receive Date: 20150112
  Receipt Date: 20150908
  Transmission Date: 20151125
  Serious: Yes (Life-Threatening, Hospitalization, Other)
  Sender: FDA-Public Use
  Company Number: US-ALEXION-A201500040

PATIENT

DRUGS (2)
  1. PREDNISONE. [Concomitant]
     Active Substance: PREDNISONE
     Indication: PRODUCT USED FOR UNKNOWN INDICATION
     Dosage: UNK
     Route: 065
  2. SOLIRIS [Suspect]
     Active Substance: ECULIZUMAB
     Indication: HAEMOLYTIC URAEMIC SYNDROME
     Dosage: UNK
     Route: 042

REACTIONS (14)
  - Cardio-respiratory arrest [Unknown]
  - Muscular weakness [Unknown]
  - Unevaluable event [Not Recovered/Not Resolved]
  - Medical observation abnormal [Not Recovered/Not Resolved]
  - Ataxia [Not Recovered/Not Resolved]
  - Confusional state [Unknown]
  - Dizziness [Recovered/Resolved]
  - Unevaluable event [Unknown]
  - Unevaluable event [Unknown]
  - Blood creatinine increased [Not Recovered/Not Resolved]
  - Acute kidney injury [Unknown]
  - Vision blurred [Recovered/Resolved]
  - Platelet count decreased [Not Recovered/Not Resolved]
  - Fall [Recovered/Resolved]

NARRATIVE: CASE EVENT DATE: 20150101
